FAERS Safety Report 24579403 (Version 1)
Quarter: 2024Q4

REPORT INFORMATION
  Report Type: Spontaneous
  Country: US (occurrence: US)
  Receive Date: 20241105
  Receipt Date: 20241105
  Transmission Date: 20250115
  Serious: No
  Sender: ASTELLAS
  Company Number: US-ASTELLAS-2024-AER-015301

PATIENT
  Sex: Male

DRUGS (2)
  1. MYRBETRIQ [Suspect]
     Active Substance: MIRABEGRON
     Indication: Product used for unknown indication
     Dosage: ONE DAILY
     Route: 065
  2. METOPROLOL SUCCINATE [Interacting]
     Active Substance: METOPROLOL SUCCINATE
     Indication: Blood pressure measurement
     Route: 065

REACTIONS (2)
  - Blood pressure increased [Unknown]
  - Drug interaction [Unknown]
